FAERS Safety Report 22949406 (Version 5)
Quarter: 2023Q4

REPORT INFORMATION
  Report Type: Report from Study
  Country: PH (occurrence: None)
  Receive Date: 20230915
  Receipt Date: 20231002
  Transmission Date: 20240110
  Serious: Yes (Hospitalization)
  Sender: FDA-Public Use
  Company Number: PH-Eisai Medical Research-EC-2023-148773

PATIENT
  Age: 69 Year
  Sex: Male
  Weight: 55.5 kg

DRUGS (11)
  1. LENVATINIB [Suspect]
     Active Substance: LENVATINIB
     Indication: Clear cell renal cell carcinoma
     Dosage: 20MG FLUCTUATED DOSAGE
     Route: 048
     Dates: start: 20220908, end: 20230910
  2. QUAVONLIMAB [Suspect]
     Active Substance: QUAVONLIMAB
     Indication: Clear cell renal cell carcinoma
     Dosage: MK-1308 25MG + PEMBROLIZUMAB 400MG; UP TO 18 UP YO 18 CYCLES OR PD OR DISCONTINUATION
     Route: 042
     Dates: start: 20220908, end: 20230831
  3. AMLODIPINE [Concomitant]
     Active Substance: AMLODIPINE BESYLATE
     Dates: start: 202001
  4. ASCORBIC ACID\ZINC [Concomitant]
     Active Substance: ASCORBIC ACID\ZINC
     Dates: start: 202001
  5. LOPERAMIDE [Concomitant]
     Active Substance: LOPERAMIDE
     Dates: start: 20230608
  6. NIFUROXAZIDE [Concomitant]
     Active Substance: NIFUROXAZIDE
     Dates: start: 20230608
  7. LEVOTHYROXINE SODIUM [Concomitant]
     Active Substance: LEVOTHYROXINE SODIUM
     Dates: start: 20230824
  8. ACETAMINOPHEN [Concomitant]
     Active Substance: ACETAMINOPHEN
     Dates: start: 20230831, end: 20230831
  9. SODIUM CHLORIDE [Concomitant]
     Active Substance: SODIUM CHLORIDE
     Dates: start: 20230824, end: 20230829
  10. CALTRATE WITH VITAMIN D [Concomitant]
     Active Substance: CALCIUM CARBONATE\CHOLECALCIFEROL
     Dates: start: 20230824
  11. PEMBROLIZUMAB [Suspect]
     Active Substance: PEMBROLIZUMAB

REACTIONS (1)
  - Hyponatraemia [Not Recovered/Not Resolved]

NARRATIVE: CASE EVENT DATE: 20230908
